FAERS Safety Report 9946856 (Version 1)
Quarter: 2014Q1

REPORT INFORMATION
  Report Type: Report from Study
  Country: US (occurrence: US)
  Receive Date: 20140303
  Receipt Date: 20140303
  Transmission Date: 20141002
  Serious: No
  Sender: FDA-Public Use
  Company Number: US-ABBVIE-13P-163-1064023-00

PATIENT
  Age: 66 Year
  Sex: Female

DRUGS (17)
  1. HUMIRA [Suspect]
     Indication: CROHN^S DISEASE
     Dates: start: 201211
  2. BALSALAZIDE [Concomitant]
     Indication: CROHN^S DISEASE
     Dosage: 750 MG 9 DAILY
  3. SYNTHROID [Concomitant]
     Indication: HYPOTHYROIDISM
     Dosage: 125 MCG DAILY
  4. ZOLOFT [Concomitant]
     Indication: ANXIETY
     Dosage: 25 MG DAILY
  5. PRILOSEC [Concomitant]
     Indication: HIATUS HERNIA
     Dosage: 20 MG DAILY
  6. KCL [Concomitant]
     Indication: MINERAL SUPPLEMENTATION
  7. KCL [Concomitant]
     Indication: MUSCLE SPASMS
  8. ESTERASE VAGINAL CREAM [Concomitant]
     Indication: PRODUCT USED FOR UNKNOWN INDICATION
     Dosage: 1 MG WEEKLY
  9. AMBIENT [Concomitant]
     Indication: INSOMNIA
     Dosage: NIGHTLY
  10. XANAX [Concomitant]
     Indication: ANXIETY
  11. CALCIUM [Concomitant]
     Indication: PRODUCT USED FOR UNKNOWN INDICATION
  12. VITAMIN D [Concomitant]
     Indication: PRODUCT USED FOR UNKNOWN INDICATION
  13. MULTIVITAMIN [Concomitant]
     Indication: PRODUCT USED FOR UNKNOWN INDICATION
  14. GLUCOSAMINE CHONDROITIN [Concomitant]
     Indication: PRODUCT USED FOR UNKNOWN INDICATION
     Dosage: 1500 MG/1200 MG
  15. SUDAFED [Concomitant]
     Indication: SEASONAL ALLERGY
  16. SUDAFED [Concomitant]
     Indication: SINUS DISORDER
  17. BENADRYL [Concomitant]
     Indication: HYPERSENSITIVITY

REACTIONS (2)
  - Arthralgia [Not Recovered/Not Resolved]
  - Arthralgia [Not Recovered/Not Resolved]
